FAERS Safety Report 11434700 (Version 9)
Quarter: 2016Q3

REPORT INFORMATION
  Report Type: Report from Study
  Country: BR (occurrence: BR)
  Receive Date: 20150831
  Receipt Date: 20160704
  Transmission Date: 20161109
  Serious: Yes (Hospitalization, Other)
  Sender: FDA-Public Use
  Company Number: PHHY2015BR103667

PATIENT
  Age: 62 Year
  Sex: Female
  Weight: 49.35 kg

DRUGS (15)
  1. SANDOSTATIN LAR DEPOT [Suspect]
     Active Substance: OCTREOTIDE ACETATE
     Dosage: 40 MG, QMO
     Route: 030
     Dates: start: 2012
  2. NORIPURUM [Suspect]
     Active Substance: IRON POLYMALTOSE
     Indication: ANAEMIA
     Dosage: 1 DF, QOD
     Route: 030
     Dates: start: 20150804
  3. PANTOPRAZOLE [Concomitant]
     Active Substance: PANTOPRAZOLE SODIUM
     Indication: GASTRIC DISORDER
     Dosage: 40 MG, QD
     Route: 048
     Dates: start: 2014
  4. SANDOSTATIN LAR DEPOT [Suspect]
     Active Substance: OCTREOTIDE ACETATE
     Dosage: 40 MG, QMO(20 MG APPLIED IN THE RIGHT SIDE AND 20 MG IN THE LEFT)
     Route: 030
  5. ATENSINA [Concomitant]
     Active Substance: CLONIDINE
     Indication: BLOOD PRESSURE INCREASED
     Dosage: 1 DF, BID
     Route: 048
     Dates: start: 20151209
  6. MONOCORDIL [Concomitant]
     Active Substance: ISOSORBIDE MONONITRATE
     Indication: BLOOD PRESSURE INCREASED
     Dosage: 20 MG, QD
     Route: 048
     Dates: start: 20151209
  7. SANDOSTATIN LAR DEPOT [Suspect]
     Active Substance: OCTREOTIDE ACETATE
     Indication: NEUROENDOCRINE TUMOUR
     Dosage: 20 MG, QMO
     Route: 030
     Dates: start: 200811
  8. INTERFERON [Suspect]
     Active Substance: INTERFERON
     Indication: PRODUCT USED FOR UNKNOWN INDICATION
     Route: 065
  9. LEVAMLODIPINE BESILATE [Concomitant]
     Active Substance: LEVAMLODIPINE BESYLATE
     Indication: BLOOD PRESSURE INCREASED
     Dosage: 5 MG, QD
     Route: 048
     Dates: start: 20150923
  10. BUSCOPAN [Concomitant]
     Active Substance: BUTYLSCOPOLAMINE BROMIDE
     Indication: ABDOMINAL PAIN
     Dosage: 10 MG, QD
     Route: 048
     Dates: start: 201502
  11. SANDOSTATIN LAR DEPOT [Suspect]
     Active Substance: OCTREOTIDE ACETATE
     Indication: SMALL INTESTINE CARCINOMA METASTATIC
     Dosage: 30 MG, QMO
     Route: 030
     Dates: end: 2012
  12. AFINITOR [Suspect]
     Active Substance: EVEROLIMUS
     Indication: NEUROENDOCRINE TUMOUR
     Route: 048
  13. LEVOID [Concomitant]
     Active Substance: LEVOTHYROXINE
     Indication: HYPOTHYROIDISM
     Dosage: 50 MG, QD
     Route: 048
  14. DEPURA [Concomitant]
     Active Substance: CHOLECALCIFEROL
     Indication: PRODUCT USED FOR UNKNOWN INDICATION
     Dosage: 10 DRP, QD
     Route: 048
  15. SIMETHICONE (DIMETHICONE) [Concomitant]
     Active Substance: DIMETHICONE
     Indication: FLATULENCE
     Dosage: 1 DF, TID
     Route: 048
     Dates: start: 201502

REACTIONS (49)
  - Seroma [Recovered/Resolved]
  - Osteomyelitis [Unknown]
  - Spinal pain [Not Recovered/Not Resolved]
  - Back pain [Unknown]
  - Injection site pain [Unknown]
  - Crying [Unknown]
  - Hypokinesia [Recovered/Resolved]
  - Blood cholesterol decreased [Unknown]
  - Candida infection [Recovering/Resolving]
  - Urinary tract infection [Recovering/Resolving]
  - Purulence [Recovering/Resolving]
  - Malaise [Unknown]
  - Macular fibrosis [Unknown]
  - Pain [Unknown]
  - Urine output decreased [Unknown]
  - Pollakiuria [Unknown]
  - Gait disturbance [Unknown]
  - Coma [Unknown]
  - Eschar [Recovering/Resolving]
  - Diabetes mellitus [Recovering/Resolving]
  - Eating disorder [Unknown]
  - Speech disorder [Unknown]
  - Diarrhoea [Unknown]
  - Nosocomial infection [Unknown]
  - Anaemia [Unknown]
  - Vomiting [Unknown]
  - Weight increased [Unknown]
  - Osteoporosis [Unknown]
  - Pyrexia [Recovered/Resolved]
  - Syncope [Recovered/Resolved]
  - Cellulitis [Recovered/Resolved]
  - Dehydration [Unknown]
  - Bacterial infection [Unknown]
  - Needle issue [Unknown]
  - Muscle contusion [Unknown]
  - Injection site mass [Recovering/Resolving]
  - Body height decreased [Unknown]
  - Scar [Unknown]
  - Hernia [Recovered/Resolved]
  - Blood triglycerides increased [Recovering/Resolving]
  - Drug ineffective [Unknown]
  - Pulmonary embolism [Recovering/Resolving]
  - Weight decreased [Not Recovered/Not Resolved]
  - Sleep disorder [Unknown]
  - Dysbacteriosis [Unknown]
  - Muscle disorder [Unknown]
  - Nausea [Unknown]
  - Dizziness [Unknown]
  - Asthenia [Unknown]

NARRATIVE: CASE EVENT DATE: 20150122
